FAERS Safety Report 23334481 (Version 2)
Quarter: 2025Q2

REPORT INFORMATION
  Report Type: Spontaneous
  Country: US (occurrence: US)
  Receive Date: 20231224
  Receipt Date: 20250503
  Transmission Date: 20250717
  Serious: Yes (Other)
  Sender: AUROBINDO
  Company Number: US-MLMSERVICE-20231208-4107802-1

PATIENT
  Age: 15 Year
  Sex: Male

DRUGS (10)
  1. LORAZEPAM [Suspect]
     Active Substance: LORAZEPAM
     Indication: Catatonia
     Route: 065
  2. ZIPRASIDONE [Concomitant]
     Active Substance: ZIPRASIDONE
     Indication: Schizophrenia
     Dosage: 40 MILLIGRAM, TWO TIMES A DAY
     Route: 065
  3. ZIPRASIDONE [Concomitant]
     Active Substance: ZIPRASIDONE
     Dosage: 20 MILLIGRAM, TWO TIMES A DAY
     Route: 065
  4. CLOZAPINE [Concomitant]
     Active Substance: CLOZAPINE
     Indication: Schizophrenia
     Dosage: 100 MILLIGRAM, ONCE A DAY (200 MG IN THE MORNING, 100 MG IN THE AFTERNOON, 250 MG IN THE EVENING (PR
     Route: 065
  5. CLOZAPINE [Concomitant]
     Active Substance: CLOZAPINE
     Dosage: 200 MILLIGRAM, ONCE A DAY (200 MG IN THE MORNING, OTHER DOSES HELD, DAY 1)
     Route: 065
  6. CLOZAPINE [Concomitant]
     Active Substance: CLOZAPINE
     Dosage: 200 MILLIGRAM, ONCE A DAY (200 MG IN THE MORNING, 100 MG IN THE AFTERNOON, 250 MG IN THE EVENING (PR
     Route: 065
  7. CLOZAPINE [Concomitant]
     Active Substance: CLOZAPINE
     Dosage: 250 MILLIGRAM, ONCE A DAY (200 MG IN THE MORNING, 100 MG IN THE AFTERNOON, 250 MG IN THE EVENING (PR
     Route: 065
  8. CLOZAPINE [Concomitant]
     Active Substance: CLOZAPINE
     Route: 065
  9. FLUOXETINE [Concomitant]
     Active Substance: FLUOXETINE HYDROCHLORIDE
     Indication: Schizophrenia
     Dosage: 20 MILLIGRAM, ONCE A DAY (40 MG IN THE MORNING AND 20 MG IN THE EVENING PRIOR-TO-ADMISSION HOME REGI
     Route: 065
  10. FLUOXETINE [Concomitant]
     Active Substance: FLUOXETINE HYDROCHLORIDE
     Dosage: 40 MILLIGRAM, ONCE A DAY (40 MG IN THE MORNING AND 20 MG IN THE EVENING (PRIOR-TO-ADMISSION HOME REG
     Route: 065

REACTIONS (1)
  - Sedation complication [Unknown]
